FAERS Safety Report 8721982 (Version 2)
Quarter: 2012Q4

REPORT INFORMATION
  Report Type: 
  Country: BR (occurrence: BR)
  Receive Date: 20120814
  Receipt Date: 20120921
  Transmission Date: 20130627
  Serious: Yes (Hospitalization)
  Sender: FDA-Public Use
  Company Number: BR-PFIZER INC-2012194232

PATIENT
  Age: 47 Year
  Sex: Female
  Weight: 72 kg

DRUGS (3)
  1. CELEBRA [Suspect]
     Indication: PAIN
     Dosage: 200 mg, twice daily (one capsule each 12 hours)
     Route: 048
     Dates: start: 2009
  2. CELEBRA [Suspect]
     Dosage: 200 mg, 1 at night
     Route: 048
     Dates: start: 201207
  3. CELEBRA [Suspect]
     Dosage: 200 mg, 1 at night
     Route: 048

REACTIONS (4)
  - Osteoarthritis [Unknown]
  - Pain [Unknown]
  - Suspected counterfeit product [Unknown]
  - Drug ineffective [Unknown]
